FAERS Safety Report 6910741-X (Version None)
Quarter: 2010Q3

REPORT INFORMATION
  Report Type: 
  Country: None (occurrence: None)
  Receive Date: 20100806
  Receipt Date: 20100726
  Transmission Date: 20110219
  Serious: Yes (Death, Other)
  Sender: FDA-Public Use
  Company Number: US-PFIZER INC-2010065411

PATIENT
  Sex: Male

DRUGS (1)
  1. SUTENT [Suspect]
     Indication: MALIGNANT HEPATOBILIARY NEOPLASM

REACTIONS (4)
  - DISEASE PROGRESSION [None]
  - HEPATIC NEOPLASM MALIGNANT [None]
  - HYPOTHYROIDISM [None]
  - MALIGNANT NEOPLASM PROGRESSION [None]
